FAERS Safety Report 10623394 (Version 1)
Quarter: 2014Q4

REPORT INFORMATION
  Report Type: Spontaneous
  Country: US (occurrence: US)
  Receive Date: 20141203
  Receipt Date: 20141203
  Transmission Date: 20150529
  Serious: No
  Sender: FDA-Public Use
  Company Number: US-MALLINCKRODT-T201403947

PATIENT
  Age: 58 Year
  Sex: Male
  Weight: 78.91 kg

DRUGS (2)
  1. HYDROMORPHONE HYDROCHLORIDE. [Concomitant]
     Active Substance: HYDROMORPHONE HYDROCHLORIDE
     Dosage: 2 MG, QID
  2. HYDROMORPHONE HYDROCHLORIDE. [Suspect]
     Active Substance: HYDROMORPHONE HYDROCHLORIDE
     Indication: CRANIAL NERVE DISORDER
     Dosage: 8 MG, QD
     Route: 048
     Dates: start: 20141027, end: 20141027

REACTIONS (15)
  - Incoherent [Recovered/Resolved]
  - Malaise [Recovered/Resolved]
  - Gastrooesophageal reflux disease [Recovered/Resolved]
  - Muscle tightness [Recovered/Resolved]
  - Eructation [Recovered/Resolved]
  - Neck pain [Recovered/Resolved]
  - Abnormal behaviour [Recovered/Resolved]
  - Tongue movement disturbance [Recovered/Resolved]
  - Headache [Recovered/Resolved]
  - Dyspnoea [Recovered/Resolved]
  - Urticaria [Recovered/Resolved]
  - Dizziness [Recovered/Resolved]
  - Nausea [Recovered/Resolved]
  - Erythema [Recovered/Resolved]
  - Pain [Recovered/Resolved]

NARRATIVE: CASE EVENT DATE: 20141027
